FAERS Safety Report 13041648 (Version 1)
Quarter: 2016Q4

REPORT INFORMATION
  Report Type: Spontaneous
  Country: US (occurrence: US)
  Receive Date: 20161219
  Receipt Date: 20161219
  Transmission Date: 20170207
  Serious: Yes (Other)
  Sender: FDA-Public Use
  Company Number: US-ROCHE-1299588

PATIENT
  Age: 70 Year
  Sex: Male

DRUGS (1)
  1. VEMURAFENIB [Suspect]
     Active Substance: VEMURAFENIB
     Indication: METASTATIC MALIGNANT MELANOMA
     Route: 065

REACTIONS (4)
  - Actinic keratosis [Recovering/Resolving]
  - Squamous cell carcinoma [Recovering/Resolving]
  - Keratoacanthoma [Unknown]
  - Milia [Recovered/Resolved]
